FAERS Safety Report 25445702 (Version 1)
Quarter: 2025Q2

REPORT INFORMATION
  Report Type: Spontaneous
  Country: MX (occurrence: MX)
  Receive Date: 20250617
  Receipt Date: 20250617
  Transmission Date: 20250717
  Serious: Yes (Hospitalization)
  Sender: SANDOZ
  Company Number: MX-002147023-NVSC2024MX032083

PATIENT
  Age: 35 Year
  Sex: Male
  Weight: 81 kg

DRUGS (19)
  1. ATORVASTATIN [Suspect]
     Active Substance: ATORVASTATIN
     Indication: Renal transplant
     Dosage: 1 DOSAGE FORM 20 MG, QD
     Route: 048
     Dates: start: 202307
  2. MYFORTIC [Suspect]
     Active Substance: MYCOPHENOLATE SODIUM
     Dosage: 2 DOSAGE FORM, BID (360 MG)
     Route: 048
  3. MYFORTIC [Suspect]
     Active Substance: MYCOPHENOLATE SODIUM
     Indication: Renal transplant
     Dosage: 1 DOSAGE FORM (360 MG), Q12H
     Route: 048
     Dates: start: 20230927
  4. MYFORTIC [Suspect]
     Active Substance: MYCOPHENOLATE SODIUM
     Route: 065
  5. MYFORTIC [Suspect]
     Active Substance: MYCOPHENOLATE SODIUM
     Indication: Myocardial ischaemia
     Dosage: 2 DOSAGE FORM, BID (360 MG)
     Route: 048
     Dates: start: 20230928
  6. TACROLIMUS [Suspect]
     Active Substance: TACROLIMUS
     Indication: Product used for unknown indication
     Route: 065
  7. ATORVASTATIN [Concomitant]
     Active Substance: ATORVASTATIN
     Indication: Catheterisation cardiac
     Dosage: 1 DOSAGE FORM OF 20 MG, QD
     Route: 048
     Dates: start: 2022
  8. CLINDAMYCIN [Concomitant]
     Active Substance: CLINDAMYCIN
     Indication: Product used for unknown indication
     Dosage: 1 DOSAGE FORM, TID
     Route: 048
  9. FEBUXOSTAT [Concomitant]
     Active Substance: FEBUXOSTAT
     Indication: Blood uric acid
     Dosage: 1 DOSAGE FORM, QD (80 MG)
     Route: 048
     Dates: start: 20240823
  10. METICORTEN [Concomitant]
     Active Substance: PREDNISONE
     Indication: Myocardial ischaemia
     Route: 065
  11. PREDNISONE [Concomitant]
     Active Substance: PREDNISONE
     Indication: Prophylaxis against transplant rejection
     Dosage: 1 DOSAGE FORM, QD (5 MG)
     Route: 048
     Dates: start: 20230927
  12. PREDNISONE [Concomitant]
     Active Substance: PREDNISONE
     Indication: Renal transplant
     Dosage: 1 DOSAGE FORM, QD (5 MG)
     Route: 048
     Dates: start: 20230928
  13. PREDNISONE [Concomitant]
     Active Substance: PREDNISONE
     Indication: Immunosuppressant drug therapy
  14. PROGRAF [Concomitant]
     Active Substance: TACROLIMUS
     Indication: Myocardial ischaemia
     Dosage: 3 DOSAGE FORM, QD
     Route: 048
     Dates: start: 20230927
  15. PROGRAF [Concomitant]
     Active Substance: TACROLIMUS
     Indication: Renal transplant
     Dosage: 3 DOSAGE FORM, QD (1 MG)
     Route: 048
     Dates: start: 20230927
  16. PROGRAF [Concomitant]
     Active Substance: TACROLIMUS
     Indication: Immunosuppressant drug therapy
     Route: 048
  17. PROGRAF [Concomitant]
     Active Substance: TACROLIMUS
     Indication: Renal transplant
  18. TACROLIMUS [Concomitant]
     Active Substance: TACROLIMUS
     Indication: Renal transplant
     Route: 048
     Dates: start: 20230928
  19. TACROLIMUS [Concomitant]
     Active Substance: TACROLIMUS
     Route: 048

REACTIONS (9)
  - Pain in extremity [Recovered/Resolved]
  - Deep vein thrombosis [Unknown]
  - Facial pain [Unknown]
  - Gallbladder disorder [Unknown]
  - Blood pressure increased [Unknown]
  - Weight decreased [Unknown]
  - Blood uric acid increased [Recovering/Resolving]
  - Hypertension [Unknown]
  - Off label use [Unknown]

NARRATIVE: CASE EVENT DATE: 20231017
